FAERS Safety Report 12457587 (Version 1)
Quarter: 2016Q2

REPORT INFORMATION
  Report Type: Spontaneous
  Country: US (occurrence: US)
  Receive Date: 20160610
  Receipt Date: 20160610
  Transmission Date: 20160815
  Serious: Yes (Other)
  Sender: FDA-Public Use
  Company Number: US-TEVA-664997USA

PATIENT
  Sex: Female
  Weight: 83.54 kg

DRUGS (3)
  1. ANASTROZOLE. [Suspect]
     Active Substance: ANASTROZOLE
     Indication: BREAST CANCER
     Dosage: 1 MILLIGRAM DAILY;
     Dates: start: 2010
  2. AROMASIN [Suspect]
     Active Substance: EXEMESTANE
     Dosage: 25 MILLIGRAM DAILY;
     Dates: start: 201508, end: 201510
  3. ANASTROZOLE. [Suspect]
     Active Substance: ANASTROZOLE
     Dosage: 1 MILLIGRAM DAILY;
     Dates: start: 201510

REACTIONS (11)
  - Musculoskeletal stiffness [Not Recovered/Not Resolved]
  - Abasia [Not Recovered/Not Resolved]
  - Thyroid neoplasm [Not Recovered/Not Resolved]
  - Limb injury [Not Recovered/Not Resolved]
  - Hypoaesthesia [Not Recovered/Not Resolved]
  - Breast cancer recurrent [Not Recovered/Not Resolved]
  - Arthralgia [Not Recovered/Not Resolved]
  - Myalgia [Not Recovered/Not Resolved]
  - Paraesthesia [Not Recovered/Not Resolved]
  - Pulmonary mass [Not Recovered/Not Resolved]
  - Muscle disorder [Not Recovered/Not Resolved]

NARRATIVE: CASE EVENT DATE: 2011
